FAERS Safety Report 4666774-X (Version None)
Quarter: 2005Q2

REPORT INFORMATION
  Report Type: 
  Country: None (occurrence: None)
  Receive Date: 20050518
  Receipt Date: 20040602
  Transmission Date: 20051028
  Serious: No
  Sender: FDA-Public Use
  Company Number: 2004198299US

PATIENT
  Age: 17 Year
  Sex: Female
  Weight: 54.4 kg

DRUGS (2)
  1. DEPO-PROVERA [Suspect]
     Indication: ENDOMETRIOSIS
     Dosage: 150 MG, INTRAMUSCULAR
     Route: 030
     Dates: start: 20040109, end: 20040109
  2. IBUPROFEN [Concomitant]

REACTIONS (5)
  - BONE PAIN [None]
  - CHEST PAIN [None]
  - HYPOAESTHESIA [None]
  - RASH [None]
  - SYNCOPE [None]
